FAERS Safety Report 15980430 (Version 1)
Quarter: 2019Q1

REPORT INFORMATION
  Report Type: Report from Study
  Country: None (occurrence: RO)
  Receive Date: 20190219
  Receipt Date: 20190219
  Transmission Date: 20190418
  Serious: Yes (Hospitalization)
  Sender: FDA-Public Use
  Company Number: RO-ABBVIE-19S-135-2667303-00

PATIENT
  Age: 49 Year
  Sex: Female

DRUGS (5)
  1. VIEKIRAX [Suspect]
     Active Substance: OMBITASVIR\PARITAPREVIR\RITONAVIR
     Indication: HEPATIC CIRRHOSIS
  2. VIEKIRAX [Suspect]
     Active Substance: OMBITASVIR\PARITAPREVIR\RITONAVIR
     Indication: HEPATITIS C
     Route: 048
     Dates: start: 20181004, end: 20181228
  3. EXVIERA [Suspect]
     Active Substance: DASABUVIR
     Indication: HEPATIC CIRRHOSIS
  4. CALCIUM LACTATE\CRATAEGUS\MAGNESIUM THIOSULFATE\MELISSA OIL [Concomitant]
     Active Substance: CALCIUM LACTATE\HAWTHORN LEAF WITH FLOWER\MAGNESIUM THIOSULFATE\MELISSA OIL
     Indication: PALPITATIONS
     Route: 048
     Dates: start: 20181217, end: 201812
  5. EXVIERA [Suspect]
     Active Substance: DASABUVIR
     Indication: HEPATITIS C
     Route: 048
     Dates: start: 20181004, end: 20181228

REACTIONS (4)
  - Palpitations [Recovered/Resolved]
  - Syncope [Recovered/Resolved]
  - Cardiac discomfort [Recovered/Resolved]
  - Weight decreased [Not Recovered/Not Resolved]

NARRATIVE: CASE EVENT DATE: 201811
